FAERS Safety Report 7076527-3 (Version None)
Quarter: 2010Q4

REPORT INFORMATION
  Report Type: 
  Country: None (occurrence: None)
  Receive Date: 20101029
  Receipt Date: 20101029
  Transmission Date: 20110411
  Serious: No
  Sender: FDA-Public Use
  Company Number: None

PATIENT
  Age: 53 Year
  Sex: Female

DRUGS (1)
  1. OXYCONTIN [Suspect]
     Indication: PAIN
     Dosage: 60 MG Q12H PO
     Route: 048
     Dates: start: 20100923

REACTIONS (3)
  - FEELING JITTERY [None]
  - INITIAL INSOMNIA [None]
  - SPEECH DISORDER [None]
